FAERS Safety Report 8771468 (Version 3)
Quarter: 2012Q4

REPORT INFORMATION
  Report Type: 
  Country: TR (occurrence: TR)
  Receive Date: 20120906
  Receipt Date: 20121017
  Transmission Date: 20130627
  Serious: Yes (Other)
  Sender: FDA-Public Use
  Company Number: TR-GLAXOSMITHKLINE-B0821677A

PATIENT
  Sex: Female

DRUGS (2)
  1. TYKERB [Suspect]
     Indication: BREAST CANCER
     Dosage: 250MG per day
     Route: 048
     Dates: start: 201112
  2. CAPECITABINE [Concomitant]
     Indication: BREAST CANCER
     Route: 048
     Dates: start: 201112

REACTIONS (3)
  - Asthma [Not Recovered/Not Resolved]
  - Metastases to central nervous system [Unknown]
  - Cough [Recovering/Resolving]
